FAERS Safety Report 4883061-5 (Version None)
Quarter: 2006Q1

REPORT INFORMATION
  Report Type: 
  Country: None (occurrence: None)
  Receive Date: 20060113
  Receipt Date: 20051223
  Transmission Date: 20060701
  Serious: Yes (Other)
  Sender: FDA-Public Use
  Company Number: GB200601000317

PATIENT
  Age: 30 Year
  Sex: Female

DRUGS (1)
  1. SOMATROPIN (SOMATROPIN UNKNOWN FORMULATION) UNKNOWN [Suspect]
     Indication: GROWTH HORMONE DEFICIENCY
     Dosage: UNK
     Route: 065

REACTIONS (2)
  - CRANIOPHARYNGIOMA [None]
  - MALIGNANT NEOPLASM PROGRESSION [None]
